FAERS Safety Report 8006621-1 (Version None)
Quarter: 2011Q4

REPORT INFORMATION
  Report Type: 
  Country: None (occurrence: None)
  Receive Date: 20111227
  Receipt Date: 20111027
  Transmission Date: 20120403
  Serious: No
  Sender: FDA-Public Use
  Company Number: US-BAYER-2011-105384

PATIENT

DRUGS (1)
  1. AVELOX [Suspect]
     Route: 042

REACTIONS (2)
  - VESSEL PUNCTURE SITE PRURITUS [None]
  - VESSEL PUNCTURE SITE REACTION [None]
